FAERS Safety Report 9421000 (Version 1)
Quarter: 2013Q3

REPORT INFORMATION
  Report Type: Spontaneous
  Country: US (occurrence: US)
  Receive Date: 20130725
  Receipt Date: 20130725
  Transmission Date: 20140515
  Serious: Yes (Other)
  Sender: FDA-Public Use
  Company Number: US-ASTRAZENECA-2013SE53200

PATIENT
  Sex: Female

DRUGS (1)
  1. ZOMIG [Suspect]
     Indication: MIGRAINE
     Dosage: 5 MG,TAKE 1 TABLET BY MOUTH AT ONSET OF MI REPEAT IN 2 HOURS IF NO RELIEF. MAXIMUM DAILY DOSAGE 10MG
     Route: 048

REACTIONS (1)
  - Convulsion [Unknown]
